FAERS Safety Report 9567187 (Version 1)
Quarter: 2013Q3

REPORT INFORMATION
  Report Type: Spontaneous
  Country: US (occurrence: US)
  Receive Date: 20130930
  Receipt Date: 20130930
  Transmission Date: 20140515
  Serious: No
  Sender: FDA-Public Use
  Company Number: US-AMGEN-USASP2012061658

PATIENT
  Age: 55 Year
  Sex: Female
  Weight: 90.7 kg

DRUGS (10)
  1. ENBREL [Suspect]
     Indication: PSORIASIS
     Dosage: 50 MG, 2 TIMES/WK
     Route: 058
  2. OMEPRAZOLE [Concomitant]
     Dosage: 20 MG, UNK
  3. HYDROCHLOROTH [Concomitant]
     Dosage: 12.5 MG, UNK
  4. AMLODIPINE [Concomitant]
     Dosage: 5 MG, UNK
  5. SIMVASTATIN [Concomitant]
     Dosage: 10 MG, UNK
  6. B-COMPLEX                          /00003501/ [Concomitant]
     Dosage: UNK
  7. VITAMIN C                          /00008001/ [Concomitant]
     Dosage: 500 MG, UNK
  8. KLOR-CON [Concomitant]
     Dosage: 20 MEQ, UNK
  9. ECHINACEA PURPUREA [Concomitant]
     Dosage: 350 MG, UNK
  10. BAYER ASPIRIN [Concomitant]
     Dosage: 325 MG, UNK

REACTIONS (3)
  - Headache [Unknown]
  - Onychoclasis [Unknown]
  - Injection site swelling [Unknown]
